FAERS Safety Report 6882667-1 (Version None)
Quarter: 2010Q3

REPORT INFORMATION
  Report Type: 
  Country: None (occurrence: None)
  Receive Date: 20100702
  Receipt Date: 20100618
  Transmission Date: 20110219
  Serious: No
  Sender: FDA-Public Use
  Company Number: 2010-00485

PATIENT
  Sex: Female

DRUGS (3)
  1. ZICAM COLD REMEDY NASAL GEL [Suspect]
     Dosage: AS DIRECTED
  2. ZICAM COLD REMEDY GEL SWABS [Suspect]
     Dosage: AS DIRECTED
  3. ZICAM ALLERGY RELIEF NASAL GEL [Suspect]
     Dosage: AS DIRECTED

REACTIONS (2)
  - AGEUSIA [None]
  - ANOSMIA [None]
